FAERS Safety Report 17186001 (Version 1)
Quarter: 2019Q4

REPORT INFORMATION
  Report Type: Spontaneous
  Country: US (occurrence: US)
  Receive Date: 20191220
  Receipt Date: 20191220
  Transmission Date: 20200122
  Serious: Yes (Other)
  Sender: FDA-Public Use
  Company Number: US-ASTRAZENECA-2019SF82037

PATIENT
  Age: 47 Year
  Sex: Female

DRUGS (1)
  1. BYDUREON BCISE [Suspect]
     Active Substance: EXENATIDE
     Indication: DIABETES MELLITUS
     Dosage: 2.0MG UNKNOWN
     Route: 058

REACTIONS (2)
  - Pancreatitis [Unknown]
  - Lipase increased [Unknown]

NARRATIVE: CASE EVENT DATE: 201912
